FAERS Safety Report 23088604 (Version 1)
Quarter: 2023Q4

REPORT INFORMATION
  Report Type: Report from Study
  Country: DE (occurrence: DE)
  Receive Date: 20231020
  Receipt Date: 20231020
  Transmission Date: 20240110
  Serious: Yes (Other)
  Sender: FDA-Public Use
  Company Number: DE-002147023-NVSC2023DE221849

PATIENT
  Age: 53 Year
  Sex: Female

DRUGS (2)
  1. MEKINIST [Suspect]
     Active Substance: TRAMETINIB DIMETHYL SULFOXIDE
     Indication: Malignant melanoma
     Dosage: UNK
     Route: 065
     Dates: start: 202204, end: 202304
  2. TAFINLAR [Suspect]
     Active Substance: DABRAFENIB MESYLATE
     Indication: Malignant melanoma
     Dosage: UNK
     Route: 065
     Dates: start: 202204, end: 202304

REACTIONS (17)
  - Major depression [Unknown]
  - Infection susceptibility increased [Unknown]
  - Fear of death [Unknown]
  - General physical health deterioration [Unknown]
  - Hormone level abnormal [Unknown]
  - Fibromyalgia [Unknown]
  - Burning sensation [Unknown]
  - Pain [Unknown]
  - Paraesthesia [Unknown]
  - Bone pain [Unknown]
  - Lymphoedema [Unknown]
  - Fatigue [Unknown]
  - Arthralgia [Unknown]
  - Pruritus [Unknown]
  - Rash [Unknown]
  - Pyrexia [Unknown]
  - Myalgia [Unknown]
